FAERS Safety Report 7662978-2 (Version None)
Quarter: 2011Q3

REPORT INFORMATION
  Report Type: 
  Country: None (occurrence: None)
  Receive Date: 20110805
  Receipt Date: 20100908
  Transmission Date: 20111222
  Serious: No
  Sender: FDA-Public Use
  Company Number: US-ABBOTT-10P-163-0670165-00

PATIENT
  Sex: Male
  Weight: 108.96 kg

DRUGS (6)
  1. BYSTOLIC [Concomitant]
     Indication: HYPERTENSION
  2. NIASPAN [Suspect]
     Dosage: 1 EACH 12 HOURS: LUNCH AND DINNER
  3. NIASPAN [Suspect]
     Indication: BLOOD CHOLESTEROL INCREASED
     Dosage: 1 EACH 12 HOURS: LUNCH AND DINNER
     Route: 048
  4. COZAAR [Concomitant]
     Indication: HYPERTENSION
  5. LIPITOR [Concomitant]
     Indication: PRODUCT USED FOR UNKNOWN INDICATION
  6. LEVOXYL [Concomitant]
     Indication: BLOOD PARATHYROID HORMONE DECREASED

REACTIONS (1)
  - BLOOD GLUCOSE INCREASED [None]
